FAERS Safety Report 7516261-6 (Version None)
Quarter: 2011Q2

REPORT INFORMATION
  Report Type: 
  Country: None (occurrence: None)
  Receive Date: 20110601
  Receipt Date: 20110531
  Transmission Date: 20111010
  Serious: No
  Sender: FDA-Public Use
  Company Number: US-ROXANE LABORATORIES, INC.-2011-RO-00752RO

PATIENT
  Sex: Female

DRUGS (1)
  1. CODEINE SUL TAB [Suspect]

REACTIONS (1)
  - SWELLING [None]
